FAERS Safety Report 24144305 (Version 1)
Quarter: 2024Q3

REPORT INFORMATION
  Report Type: Spontaneous
  Country: US (occurrence: US)
  Receive Date: 20240728
  Receipt Date: 20240728
  Transmission Date: 20241016
  Serious: No
  Sender: BOEHRINGER INGELHEIM
  Company Number: US-BoehringerIngelheim-2024-BI-042262

PATIENT
  Age: 65 Year
  Sex: Male

DRUGS (1)
  1. OFEV [Suspect]
     Active Substance: NINTEDANIB
     Indication: Fibrosis
     Dates: start: 2024

REACTIONS (2)
  - Diarrhoea [Not Recovered/Not Resolved]
  - Anal haemorrhage [Recovered/Resolved]

NARRATIVE: CASE EVENT DATE: 20240101
